FAERS Safety Report 13881971 (Version 2)
Quarter: 2017Q3

REPORT INFORMATION
  Report Type: Spontaneous
  Country: IT (occurrence: IT)
  Receive Date: 20170818
  Receipt Date: 20170919
  Transmission Date: 20171127
  Serious: Yes (Other)
  Sender: FDA-Public Use
  Company Number: PHHY2017IT119726

PATIENT
  Age: 48 Year
  Sex: Female

DRUGS (2)
  1. DOCETAXEL SANDOZ [Suspect]
     Active Substance: DOCETAXEL
     Indication: BREAST CANCER
     Dosage: 102 MG, CYCLIC
     Route: 042
     Dates: start: 20170407
  2. ENDOXAN [Suspect]
     Active Substance: CYCLOPHOSPHAMIDE
     Indication: BREAST CANCER
     Dosage: 1020 MG, CYCLIC
     Route: 042
     Dates: start: 20170407

REACTIONS (5)
  - Oropharyngeal pain [Recovered/Resolved]
  - Intraductal papillary mucinous neoplasm [Unknown]
  - Neutropenia [Recovered/Resolved]
  - Pyrexia [Recovered/Resolved]
  - Goitre [Unknown]

NARRATIVE: CASE EVENT DATE: 20170526
